FAERS Safety Report 7434487-7 (Version None)
Quarter: 2011Q2

REPORT INFORMATION
  Report Type: 
  Country: None (occurrence: None)
  Receive Date: 20110420
  Receipt Date: 20110420
  Transmission Date: 20111010
  Serious: Yes (Other)
  Sender: FDA-Public Use
  Company Number: None

PATIENT
  Age: 42 Year
  Sex: Female
  Weight: 58.9676 kg

DRUGS (2)
  1. ADDERALL XR 20 [Suspect]
     Indication: ATTENTION DEFICIT/HYPERACTIVITY DISORDER
     Dosage: 20 MG EVERY MORNING PO
     Route: 048
     Dates: start: 20000110, end: 20110415
  2. PSEUDOEPHEDRINE 240 MG [Suspect]
     Indication: NASAL CONGESTION
     Dosage: 240 MG ONCE DAILY PO
     Route: 048
     Dates: start: 20110412, end: 20110415

REACTIONS (3)
  - INSOMNIA [None]
  - PALPITATIONS [None]
  - NASAL CONGESTION [None]
